FAERS Safety Report 10923914 (Version 1)
Quarter: 2015Q1

REPORT INFORMATION
  Report Type: Spontaneous
  Country: US (occurrence: None)
  Receive Date: 20150316
  Receipt Date: 20150316
  Transmission Date: 20150721
  Serious: Yes (Hospitalization, Disabling, Other)
  Sender: FDA-Public Use
  Company Number: None

PATIENT
  Age: 81 Year
  Sex: Female
  Weight: 90.72 kg

DRUGS (12)
  1. WARFARIN [Concomitant]
     Active Substance: WARFARIN
  2. CARVEDILOL. [Concomitant]
     Active Substance: CARVEDILOL
  3. IRON WITH VITAMIN C [Concomitant]
  4. HYDROCODONE BITARTRATE AND ACETAMINOPHEN [Concomitant]
     Active Substance: ACETAMINOPHEN\HYDROCODONE BITARTRATE
  5. FLURBIPROFEN 100 MG BID [Suspect]
     Active Substance: FLURBIPROFEN
     Indication: ARTHRITIS
     Route: 048
     Dates: start: 20090716, end: 20141221
  6. XARELTO [Suspect]
     Active Substance: RIVAROXABAN
     Indication: PULMONARY EMBOLISM
     Dates: start: 20150112, end: 20150122
  7. ENALAPRIL [Concomitant]
     Active Substance: ENALAPRIL
  8. POTASSIUM CHLORIDE. [Concomitant]
     Active Substance: POTASSIUM CHLORIDE
  9. VITAMIN D [Concomitant]
     Active Substance: CHOLECALCIFEROL
  10. MEGARED FISH OIL [Concomitant]
  11. HYDROCHOROTHIAZIDE [Concomitant]
     Active Substance: HYDROCHLOROTHIAZIDE
  12. AMLOPODINE [Concomitant]

REACTIONS (12)
  - Pneumonia [None]
  - Acute kidney injury [None]
  - Urinary tract infection [None]
  - Lactic acidosis [None]
  - Gait disturbance [None]
  - Rectal haemorrhage [None]
  - Shock [None]
  - Hypokalaemia [None]
  - Pulmonary embolism [None]
  - Hypoalbuminaemia [None]
  - Asthenia [None]
  - Atrial fibrillation [None]

NARRATIVE: CASE EVENT DATE: 20141221
